FAERS Safety Report 21582131 (Version 2)
Quarter: 2022Q4

REPORT INFORMATION
  Report Type: Spontaneous
  Country: US (occurrence: None)
  Receive Date: 20221111
  Receipt Date: 20221205
  Transmission Date: 20230113
  Serious: Yes (Death, Hospitalization)
  Sender: FDA-Public Use
  Company Number: 2022A368194

PATIENT
  Age: 31599 Day
  Sex: Female
  Weight: 64 kg

DRUGS (2)
  1. FASLODEX [Suspect]
     Active Substance: FULVESTRANT
     Indication: Breast cancer stage IV
     Route: 030
  2. FASLODEX [Suspect]
     Active Substance: FULVESTRANT
     Indication: Breast cancer stage IV
     Route: 030

REACTIONS (2)
  - Death [Fatal]
  - Product use issue [Unknown]

NARRATIVE: CASE EVENT DATE: 20220930
